FAERS Safety Report 9508637 (Version 2)
Quarter: 2013Q3

REPORT INFORMATION
  Report Type: Spontaneous
  Country: NL (occurrence: NL)
  Receive Date: 20130909
  Receipt Date: 20130909
  Transmission Date: 20140515
  Serious: Yes (Death)
  Sender: FDA-Public Use
  Company Number: NL-BAXTER-2013BAX032994

PATIENT
  Age: 80 Year
  Sex: Male

DRUGS (4)
  1. DIANEAL PD-4 [Suspect]
     Indication: PLASMA CELL MYELOMA
     Route: 033
  2. DIANEAL PD4 [Suspect]
     Indication: HYPERTENSION
  3. EXTRANEAL [Suspect]
     Indication: PLASMA CELL MYELOMA
     Route: 033
  4. EXTRANEAL [Suspect]
     Indication: HYPERTENSION

REACTIONS (1)
  - Cardiac disorder [Fatal]
